FAERS Safety Report 24222127 (Version 1)
Quarter: 2024Q3

REPORT INFORMATION
  Report Type: Spontaneous
  Country: US (occurrence: US)
  Receive Date: 20240819
  Receipt Date: 20240819
  Transmission Date: 20241016
  Serious: Yes (Disabling)
  Sender: BOEHRINGER INGELHEIM
  Company Number: US-BoehringerIngelheim-2024-BI-045667

PATIENT
  Age: 75 Year
  Sex: Female

DRUGS (1)
  1. JARDIANCE [Suspect]
     Active Substance: EMPAGLIFLOZIN
     Indication: Atrial fibrillation
     Dosage: DAILY DOSE: 10 MILLIGRAM(S)
     Dates: start: 20240612

REACTIONS (3)
  - Illness [Unknown]
  - Panic reaction [Not Recovered/Not Resolved]
  - Off label use [Unknown]
